FAERS Safety Report 23116692 (Version 1)
Quarter: 2023Q4

REPORT INFORMATION
  Report Type: Spontaneous
  Country: US (occurrence: US)
  Receive Date: 20231027
  Receipt Date: 20231027
  Transmission Date: 20240110
  Serious: No
  Sender: FDA-Public Use
  Company Number: US-PERRIGO-23US008087

PATIENT
  Age: 71 Year
  Sex: Female
  Weight: 80.726 kg

DRUGS (1)
  1. FAMOTIDINE [Suspect]
     Active Substance: FAMOTIDINE
     Indication: Dyspepsia
     Dosage: 20 UNK, PRN
     Route: 048
     Dates: start: 202301

REACTIONS (1)
  - Expired product administered [Not Recovered/Not Resolved]

NARRATIVE: CASE EVENT DATE: 20230101
